FAERS Safety Report 11269636 (Version 2)
Quarter: 2015Q4

REPORT INFORMATION
  Report Type: Spontaneous
  Country: SE (occurrence: SE)
  Receive Date: 20150714
  Receipt Date: 20151014
  Transmission Date: 20160304
  Serious: Yes (Other)
  Sender: FDA-Public Use
  Company Number: SE-ACTAVIS-2015-14224

PATIENT
  Age: 66 Year
  Sex: Female

DRUGS (1)
  1. ENALAPRIL ACTAVIS [Suspect]
     Active Substance: ENALAPRIL
     Indication: ESSENTIAL HYPERTENSION
     Dosage: UNK
     Route: 065
     Dates: end: 20150629

REACTIONS (2)
  - Rash pruritic [Unknown]
  - Rash generalised [Unknown]

NARRATIVE: CASE EVENT DATE: 20150629
